FAERS Safety Report 6858350-5 (Version None)
Quarter: 2010Q3

REPORT INFORMATION
  Report Type: 
  Country: None (occurrence: None)
  Receive Date: 20100719
  Receipt Date: 20080416
  Transmission Date: 20110219
  Serious: No
  Sender: FDA-Public Use
  Company Number: US-PFIZER INC-2008011747

PATIENT
  Sex: Female
  Weight: 99.8 kg

DRUGS (4)
  1. CHANTIX [Suspect]
     Indication: SMOKING CESSATION THERAPY
     Route: 048
     Dates: start: 20080119, end: 20080315
  2. LEVOXYL [Concomitant]
     Route: 048
     Dates: start: 20040301
  3. ZOLOFT [Concomitant]
     Route: 048
     Dates: start: 20050101
  4. WELLBUTRIN [Concomitant]
     Route: 048
     Dates: start: 20050601

REACTIONS (2)
  - ABNORMAL DREAMS [None]
  - RASH PRURITIC [None]
